FAERS Safety Report 7241432-6 (Version None)
Quarter: 2011Q1

REPORT INFORMATION
  Report Type: 
  Country: None (occurrence: None)
  Receive Date: 20110114
  Receipt Date: 20101229
  Transmission Date: 20110831
  Serious: Yes (Hospitalization, Other)
  Sender: FDA-Public Use
  Company Number: 2011000064

PATIENT
  Age: 88 Year
  Sex: Female

DRUGS (5)
  1. ERLOTINIB (ERLOTINIB) (TABLET) (ERLOTINIB) [Suspect]
     Indication: MYELODYSPLASTIC SYNDROME
     Dosage: (100 MG, QD), ORAL
     Route: 048
     Dates: start: 20101201, end: 20101207
  2. LOVAZA [Concomitant]
  3. METOPROLOL SUCCINATE [Concomitant]
  4. IMODIUM [Concomitant]
  5. CALCIUM (CALCIUM) [Concomitant]

REACTIONS (12)
  - PANCYTOPENIA [None]
  - OSTEOPENIA [None]
  - ECCHYMOSIS [None]
  - BLOOD ALBUMIN DECREASED [None]
  - OSTEOARTHRITIS [None]
  - FATIGUE [None]
  - ANAEMIA [None]
  - MOBILITY DECREASED [None]
  - BLOOD GLUCOSE INCREASED [None]
  - DIARRHOEA [None]
  - DECREASED APPETITE [None]
  - DEAFNESS NEUROSENSORY [None]
